FAERS Safety Report 5313263-5 (Version None)
Quarter: 2007Q2

REPORT INFORMATION
  Report Type: 
  Country: None (occurrence: None)
  Receive Date: 20070501
  Receipt Date: 20070423
  Transmission Date: 20071010
  Serious: Yes (Hospitalization)
  Sender: FDA-Public Use
  Company Number: DE-JNJFOC-20070406091

PATIENT
  Age: 63 Year
  Sex: Male

DRUGS (9)
  1. TRAMADOL HCL [Suspect]
     Route: 048
  2. TRAMADOL HCL [Suspect]
     Route: 048
  3. TRAMADOL HCL [Suspect]
     Route: 048
  4. TRAMADOL HCL [Suspect]
     Route: 048
  5. TRAMADOL HCL [Suspect]
     Route: 048
  6. TRAMADOL HCL [Suspect]
     Route: 048
  7. TRAMADOL HCL [Suspect]
     Route: 048
  8. TRAMADOL HCL [Suspect]
     Route: 048
  9. TRAMADOL HCL [Suspect]
     Indication: EAR PAIN
     Route: 048

REACTIONS (3)
  - CONSTIPATION [None]
  - DIVERTICULUM [None]
  - POISONING [None]
